FAERS Safety Report 10308022 (Version 1)
Quarter: 2014Q3

REPORT INFORMATION
  Report Type: Spontaneous
  Country: US (occurrence: None)
  Receive Date: 20140715
  Receipt Date: 20140715
  Transmission Date: 20150326
  Serious: No
  Sender: FDA-Public Use
  Company Number: None

PATIENT
  Age: 30 Year
  Sex: Female
  Weight: 47.17 kg

DRUGS (1)
  1. TUBERSOL [Suspect]
     Active Substance: TUBERCULIN PURIFIED PROTEIN DERIVATIVE

REACTIONS (6)
  - Nausea [None]
  - Cough [None]
  - Injection site vesicles [None]
  - Haematuria [None]
  - Fatigue [None]
  - Malaise [None]

NARRATIVE: CASE EVENT DATE: 20140707
